FAERS Safety Report 8179302-1 (Version None)
Quarter: 2012Q1

REPORT INFORMATION
  Report Type: 
  Country: None (occurrence: None)
  Receive Date: 20120302
  Receipt Date: 20120224
  Transmission Date: 20120608
  Serious: Yes (Hospitalization, Other)
  Sender: FDA-Public Use
  Company Number: DE-AMGEN-DEUSP2012008385

PATIENT
  Age: 37 Year
  Sex: Male
  Weight: 68.4 kg

DRUGS (13)
  1. CINACALCET HYDROCHLORIDE [Suspect]
     Indication: HYPERPARATHYROIDISM SECONDARY
     Dosage: QD60 MG, UNK
     Dates: start: 20090311
  2. ALLOPURINOL [Concomitant]
     Indication: HYPERTENSION
     Dosage: 100 MG, QD
     Route: 048
     Dates: start: 20061001
  3. ARANESP [Suspect]
     Indication: DIALYSIS
     Dosage: 40 MUG, UNK
     Route: 058
     Dates: start: 20080410
  4. SEVELAMER [Concomitant]
     Dosage: 800 MG, UNK
  5. BISOPROLOL FUMARATE [Concomitant]
     Indication: HYPERTENSION
     Dosage: 5 MG, QD
     Route: 048
     Dates: start: 20070401
  6. PARICALCITOL [Concomitant]
     Dosage: 5 MUG/ML, 3 TIMES/WK
  7. POLYETHYLENE GLYCOL [Concomitant]
  8. CIPRO [Concomitant]
     Dosage: 250 MG, UNK
  9. PHOS-EX [Concomitant]
     Indication: HYPERPHOSPHATAEMIA
     Dosage: 4 UNK, QD
     Route: 048
     Dates: start: 20081001
  10. CINACALCET HYDROCHLORIDE [Suspect]
     Dosage: 30 MG, QD
     Dates: start: 20090309
  11. LOSARTAN POTASSIUM [Concomitant]
     Indication: HYPERTENSION
     Dosage: 100 MG, QD
     Dates: start: 20070914
  12. PREDNISONE TAB [Concomitant]
     Indication: PROPHYLAXIS AGAINST TRANSPLANT REJECTION
     Dosage: 50 MG, QD
     Route: 048
     Dates: start: 19940101
  13. DREISAVIT [Concomitant]
     Indication: DIALYSIS
     Dosage: 1 UNK, QD
     Dates: start: 20081101

REACTIONS (4)
  - CARDIOMYOPATHY [None]
  - CONGESTIVE CARDIOMYOPATHY [None]
  - BASAL CELL CARCINOMA [None]
  - CARDIAC FAILURE [None]
